FAERS Safety Report 20795527 (Version 1)
Quarter: 2022Q2

REPORT INFORMATION
  Report Type: Spontaneous
  Country: US (occurrence: US)
  Receive Date: 20220506
  Receipt Date: 20220506
  Transmission Date: 20220721
  Serious: Yes (Life-Threatening, Hospitalization)
  Sender: FDA-Public Use
  Company Number: US-MYLANLABS-2022M1033264

PATIENT
  Age: 64 Year
  Sex: Male

DRUGS (11)
  1. ACETAMINOPHEN [Suspect]
     Active Substance: ACETAMINOPHEN
     Indication: Pain
     Dosage: UNK
     Route: 065
  2. EPINEPHRINE [Suspect]
     Active Substance: EPINEPHRINE
     Indication: Haemodynamic instability
     Dosage: UNK
     Route: 065
  3. EPINEPHRINE [Suspect]
     Active Substance: EPINEPHRINE
     Indication: Listeriosis
  4. AMPICILLIN [Suspect]
     Active Substance: AMPICILLIN
     Indication: Listeriosis
     Dosage: 2000 MILLIGRAM, Q6H
     Route: 042
  5. ACETYLCYSTEINE [Suspect]
     Active Substance: ACETYLCYSTEINE
     Indication: Encephalopathy
     Dosage: UNK
     Route: 065
  6. RIFAXIMIN [Suspect]
     Active Substance: RIFAXIMIN
     Indication: Encephalopathy
     Dosage: UNK
     Route: 065
  7. LACTULOSE [Suspect]
     Active Substance: LACTULOSE
     Indication: Encephalopathy
     Dosage: UNK
     Route: 065
  8. LACTULOSE [Suspect]
     Active Substance: LACTULOSE
     Dosage: UNK UNK, TID
     Route: 065
  9. GENTAMICIN [Concomitant]
     Active Substance: GENTAMICIN
     Indication: Listeriosis
     Dosage: 80 MILLIGRAM, QD
     Route: 065
  10. VANCOMYCIN [Concomitant]
     Active Substance: VANCOMYCIN
     Indication: Evidence based treatment
     Dosage: 1000 MILLIGRAM, QD
     Route: 042
  11. CEFEPIME [Concomitant]
     Active Substance: CEFEPIME HYDROCHLORIDE
     Indication: Evidence based treatment
     Dosage: 500 MILLIGRAM, QD
     Route: 065

REACTIONS (2)
  - Drug ineffective [Unknown]
  - Intentional product misuse [Unknown]
